FAERS Safety Report 6933981-2 (Version None)
Quarter: 2010Q3

REPORT INFORMATION
  Report Type: 
  Country: None (occurrence: None)
  Receive Date: 20100820
  Receipt Date: 20100809
  Transmission Date: 20110219
  Serious: Yes (Death, Hospitalization)
  Sender: FDA-Public Use
  Company Number: DE-JNJFOC-20090904545

PATIENT
  Age: 51 Year
  Sex: Male

DRUGS (5)
  1. REMICADE [Suspect]
     Indication: ANKYLOSING SPONDYLITIS
     Route: 042
     Dates: start: 20060807, end: 20090805
  2. REMICADE [Suspect]
     Route: 042
     Dates: start: 20060807, end: 20090805
  3. NEBIVOLOL HCL [Concomitant]
  4. JODTHYROX [Concomitant]
  5. PANTOZOL [Concomitant]

REACTIONS (1)
  - MYOCARDIAL INFARCTION [None]
